FAERS Safety Report 8439377 (Version 2)
Quarter: 2013Q2

REPORT INFORMATION
  Report Type: Spontaneous
  Country: US (occurrence: None)
  Receive Date: 20120104
  Receipt Date: 20120508
  Transmission Date: 20140414
  Serious: No
  Sender: FDA-Public Use
  Company Number: 2011HGS-002610

PATIENT
  Age: 45 Year
  Sex: Female
  Weight: 65.77 kg

DRUGS (15)
  1. BENLYSTA [Suspect]
     Indication: SYSTEMIC LUPUS ERYTHEMATOSUS
     Dosage: 10 MG/KG, 1 IN 28 D, INTRAVENOUS DRIP
     Route: 041
     Dates: start: 20110610
  2. PREDNISONE [Concomitant]
  3. MERCAPTOPURINE [Concomitant]
  4. DICLOFENAC XR (DICLOFENAC) [Concomitant]
  5. PLAQUENIL [Concomitant]
  6. LORATIDINE [Concomitant]
  7. PROTONIX [Concomitant]
  8. LASIX [Concomitant]
  9. NORFLEX [Concomitant]
  10. LUNESTA [Concomitant]
  11. ATELVIA (RISEDRONATE SODIUM) [Concomitant]
  12. MVI (MVI) (VITAMIN NOS) [Concomitant]
  13. IRON (IRON) [Concomitant]
  14. FOLIC ACID [Concomitant]
  15. LATANOPROST [Concomitant]

REACTIONS (5)
  - BONE PAIN [None]
  - NAUSEA [None]
  - Arthralgia [None]
  - Diarrhoea [None]
  - Abdominal pain [None]
